FAERS Safety Report 5477052-3 (Version None)
Quarter: 2007Q4

REPORT INFORMATION
  Report Type: 
  Country: None (occurrence: None)
  Receive Date: 20071004
  Receipt Date: 20070928
  Transmission Date: 20080405
  Serious: Yes (Disabling, Other)
  Sender: FDA-Public Use
  Company Number: US-MERCK-0705USA02030

PATIENT
  Age: 35 Year
  Sex: Female

DRUGS (5)
  1. FOSAMAX [Suspect]
     Indication: OSTEOPENIA
     Route: 048
     Dates: start: 19950101
  2. FOSAMAX [Suspect]
     Indication: OSTEOPOROSIS
     Route: 048
     Dates: start: 19950101
  3. VICODIN [Concomitant]
     Indication: PAIN MANAGEMENT
     Route: 065
  4. SOMA [Concomitant]
     Indication: SLEEP DISORDER THERAPY
     Route: 065
  5. NAPROXEN [Concomitant]
     Route: 065

REACTIONS (18)
  - ABSCESS [None]
  - ANXIETY [None]
  - BACK PAIN [None]
  - BRONCHITIS [None]
  - DEPRESSION [None]
  - DISTURBANCE IN SOCIAL BEHAVIOUR [None]
  - DYSPEPSIA [None]
  - EAR PAIN [None]
  - FUNGAL INFECTION [None]
  - GINGIVAL INFECTION [None]
  - HYPERTENSION [None]
  - INTERVERTEBRAL DISC DEGENERATION [None]
  - OSTEONECROSIS [None]
  - ROAD TRAFFIC ACCIDENT [None]
  - SCOLIOSIS [None]
  - SEXUALLY TRANSMITTED DISEASE [None]
  - SPINAL COLUMN STENOSIS [None]
  - UPPER LIMB FRACTURE [None]
